FAERS Safety Report 8175758-9 (Version None)
Quarter: 2012Q1

REPORT INFORMATION
  Report Type: 
  Country: None (occurrence: None)
  Receive Date: 20120228
  Receipt Date: 20120228
  Transmission Date: 20120608
  Serious: No
  Sender: FDA-Public Use
  Company Number: None

PATIENT
  Sex: Female

DRUGS (2)
  1. RIBAVIRIN [Suspect]
     Indication: HEPATITIS C
     Dosage: 800MG BID PO
     Route: 048
     Dates: start: 20120119, end: 20120223
  2. PEGASYS [Suspect]
     Indication: HEPATITIS C
     Dosage: 180MCG QW SQ
     Route: 058
     Dates: start: 20120119, end: 20120223

REACTIONS (2)
  - PLATELET COUNT DECREASED [None]
  - BLOOD POTASSIUM DECREASED [None]
